FAERS Safety Report 17570371 (Version 1)
Quarter: 2020Q1

REPORT INFORMATION
  Report Type: Spontaneous
  Country: US (occurrence: US)
  Receive Date: 20200323
  Receipt Date: 20200323
  Transmission Date: 20200409
  Serious: No
  Sender: FDA-Public Use
  Company Number: US-ALLERGAN-1922963US

PATIENT
  Age: 64 Year
  Sex: Female

DRUGS (5)
  1. UNSPECIFED MIGRAINE MEDICATION [Concomitant]
     Indication: MIGRAINE
     Dosage: UNK
     Route: 065
  2. UNSPECIFED THYROID MEDICATION [Concomitant]
     Indication: THYROID DISORDER
     Dosage: UNK
     Route: 065
  3. VIOKACE [Suspect]
     Active Substance: PANCRELIPASE AMYLASE\PANCRELIPASE LIPASE\PANCRELIPASE PROTEASE
     Indication: PANCREATIC FAILURE
     Dosage: 10,440 UNITS, 1 TABLET BEFORE MEALS
     Route: 048
     Dates: start: 201904
  4. RIFAXIMIN. [Concomitant]
     Active Substance: RIFAXIMIN
     Dosage: UNK
     Dates: start: 201903
  5. HYDROCHLORIC ACID [Concomitant]
     Active Substance: HYDROCHLORIC ACID
     Dosage: UNK, QD
     Route: 048
     Dates: start: 201903

REACTIONS (2)
  - Dyspepsia [Not Recovered/Not Resolved]
  - Intentional product misuse [Unknown]

NARRATIVE: CASE EVENT DATE: 201904
